APPROVED DRUG PRODUCT: CYSVIEW KIT
Active Ingredient: HEXAMINOLEVULINATE HYDROCHLORIDE
Strength: 100MG/VIAL
Dosage Form/Route: FOR SOLUTION;INTRAVESICAL
Application: N022555 | Product #001
Applicant: PHOTOCURE ASA
Approved: May 28, 2010 | RLD: Yes | RS: Yes | Type: RX

PATENTS:
Patent 10556010 | Expires: Dec 19, 2036
Patent 11235168 | Expires: Jan 4, 2038
Patent 11311620 | Expires: Dec 19, 2036